FAERS Safety Report 10887162 (Version 1)
Quarter: 2015Q1

REPORT INFORMATION
  Report Type: Spontaneous
  Country: US (occurrence: US)
  Receive Date: 20150304
  Receipt Date: 20150304
  Transmission Date: 20150721
  Serious: No
  Sender: FDA-Public Use
  Company Number: US-GLAXOSMITHKLINE-US2014033606

PATIENT
  Age: 54 Year
  Sex: Female

DRUGS (10)
  1. IMITREX SPRAY [Suspect]
     Active Substance: SUMATRIPTAN
     Indication: MIGRAINE
     Dosage: 1 DF, PRN
     Route: 045
  2. PAROXETINE [Concomitant]
     Active Substance: PAROXETINE\PAROXETINE HYDROCHLORIDE
  3. CELEBREX [Concomitant]
     Active Substance: CELECOXIB
  4. ADVAIR DISKUS [Suspect]
     Active Substance: FLUTICASONE PROPIONATE\SALMETEROL XINAFOATE
     Indication: CHRONIC OBSTRUCTIVE PULMONARY DISEASE
     Dosage: 1 PUFF(S), BID
     Route: 055
  5. VENTOLIN HFA [Suspect]
     Active Substance: ALBUTEROL SULFATE
     Indication: ASTHMA
     Dosage: 2 PUFF(S), QID
     Route: 055
  6. LYRICA [Concomitant]
     Active Substance: PREGABALIN
  7. CALCITRON [Concomitant]
  8. MUCINEX [Concomitant]
     Active Substance: GUAIFENESIN
  9. TRAZODONE [Concomitant]
     Active Substance: TRAZODONE HYDROCHLORIDE
  10. COMBIVENT RESPIMAT [Concomitant]
     Active Substance: ALBUTEROL SULFATE\IPRATROPIUM BROMIDE

REACTIONS (5)
  - Malaise [Unknown]
  - Bronchitis [Unknown]
  - Dyspnoea [Not Recovered/Not Resolved]
  - Intentional product use issue [Unknown]
  - Secretion discharge [Not Recovered/Not Resolved]

NARRATIVE: CASE EVENT DATE: 20141205
